FAERS Safety Report 12455726 (Version 2)
Quarter: 2016Q3

REPORT INFORMATION
  Report Type: Spontaneous
  Country: US (occurrence: US)
  Receive Date: 20160610
  Receipt Date: 20160811
  Transmission Date: 20161109
  Serious: No
  Sender: FDA-Public Use
  Company Number: US-ASTRAZENECA-2016SE59305

PATIENT
  Age: 28634 Day
  Sex: Female
  Weight: 63.5 kg

DRUGS (7)
  1. PREVNAR 13 [Concomitant]
     Active Substance: PNEUMOCOCCAL 13-VALENT CONJUGATE VACCINE
  2. LEVOTHYROXINE. [Concomitant]
     Active Substance: LEVOTHYROXINE
  3. TUDORZA PRESSAIR [Suspect]
     Active Substance: ACLIDINIUM BROMIDE
     Indication: CHRONIC OBSTRUCTIVE PULMONARY DISEASE
     Dosage: 400 MCG, ONE PUFF TWO TIMES A DAY
     Route: 055
     Dates: start: 201604
  4. TUDORZA PRESSAIR [Suspect]
     Active Substance: ACLIDINIUM BROMIDE
     Indication: BRONCHITIS
     Dosage: 400 MCG, ONE PUFF TWO TIMES A DAY
     Route: 055
     Dates: start: 201604
  5. XOPENEX HFA [Concomitant]
     Active Substance: LEVALBUTEROL TARTRATE
     Dosage: ONE PUFF TO TWO PUFFS EVERY 4 HOURS AS NEEDED
  6. TUDORZA PRESSAIR [Suspect]
     Active Substance: ACLIDINIUM BROMIDE
     Indication: ASTHMA
     Dosage: 400 MCG, ONE PUFF TWO TIMES A DAY
     Route: 055
     Dates: start: 201604
  7. VENTOLIN [Concomitant]
     Active Substance: ALBUTEROL SULFATE
     Dosage: AS NEEDED

REACTIONS (7)
  - Intentional product misuse [Unknown]
  - Weight decreased [Unknown]
  - Product use issue [Unknown]
  - Decreased appetite [Unknown]
  - Off label use [Unknown]
  - Device failure [Unknown]
  - Circumstance or information capable of leading to medication error [Unknown]

NARRATIVE: CASE EVENT DATE: 20160427
